FAERS Safety Report 8899996 (Version 1)
Quarter: 2012Q4

REPORT INFORMATION
  Report Type: 
  Country: US (occurrence: US)
  Receive Date: 20121108
  Receipt Date: 20121108
  Transmission Date: 20130627
  Serious: No
  Sender: FDA-Public Use
  Company Number: US-AMGEN-USASP2012036422

PATIENT
  Sex: Female

DRUGS (5)
  1. ENBREL [Suspect]
     Indication: RHEUMATOID ARTHRITIS
     Dosage: 50 mg, qwk
     Dates: start: 201205
  2. PLAQUENIL                          /00072602/ [Concomitant]
  3. CALCIUM [Concomitant]
  4. VITAMIN D /00107901/ [Concomitant]
  5. TRAMADOL [Concomitant]

REACTIONS (2)
  - Rash [Unknown]
  - Injection site pain [Unknown]
